FAERS Safety Report 21825651 (Version 1)
Quarter: 2023Q1

REPORT INFORMATION
  Report Type: Spontaneous
  Country: CA (occurrence: CA)
  Receive Date: 20230105
  Receipt Date: 20230105
  Transmission Date: 20230417
  Serious: Yes (Other)
  Sender: FDA-Public Use
  Company Number: CA-BRISTOL-MYERS SQUIBB COMPANY-2023-001822

PATIENT
  Age: 56 Year
  Sex: Female
  Weight: 100 kg

DRUGS (2)
  1. OPDIVO [Suspect]
     Active Substance: NIVOLUMAB
     Indication: Adrenal gland cancer metastatic
     Dosage: OPDIVO 100MG/10ML(SINGLE-USE VIAL)
     Route: 041
  2. OPDIVO [Suspect]
     Active Substance: NIVOLUMAB
     Dosage: OPDIVO 40MG/4ML(SINGLE-USE VIAL)
     Route: 041

REACTIONS (6)
  - Acrokeratosis paraneoplastica [Recovered/Resolved]
  - Autoimmune disorder [Recovered/Resolved]
  - Dermatitis psoriasiform [Recovered/Resolved]
  - Erythema [Recovered/Resolved]
  - Psoriasis [Recovered/Resolved]
  - Off label use [Unknown]
